FAERS Safety Report 9163601 (Version 2)
Quarter: 2013Q2

REPORT INFORMATION
  Report Type: Report from Study
  Country: US (occurrence: US)
  Receive Date: 20130314
  Receipt Date: 20130529
  Transmission Date: 20140414
  Serious: Yes (Hospitalization, Other)
  Sender: FDA-Public Use
  Company Number: US-TEVA-391219USA

PATIENT
  Age: 76 Year
  Sex: Male
  Weight: 107.5 kg

DRUGS (10)
  1. TREANDA [Suspect]
     Indication: MANTLE CELL LYMPHOMA
     Route: 042
     Dates: start: 20130117
  2. TREANDA [Suspect]
     Route: 042
     Dates: start: 20130216
  3. RITUXIMAB [Suspect]
     Indication: MANTLE CELL LYMPHOMA
     Route: 042
     Dates: start: 20130117, end: 20130215
  4. RITUXIMAB [Suspect]
     Route: 042
     Dates: start: 20130215
  5. IBRUTINIB [Suspect]
     Indication: MANTLE CELL LYMPHOMA
     Dosage: 560 MILLIGRAM DAILY;
     Route: 048
     Dates: start: 20130117
  6. IBRUTINIB [Suspect]
     Dosage: 560 MILLIGRAM DAILY;
     Route: 048
     Dates: start: 20130228
  7. COMPAZINE [Concomitant]
  8. VALACICLOVIR [Concomitant]
  9. NEXIUM [Concomitant]
  10. LORAZEPAM [Concomitant]

REACTIONS (8)
  - Atrial flutter [Recovered/Resolved with Sequelae]
  - Respiratory failure [Recovered/Resolved with Sequelae]
  - Pleural effusion [Recovered/Resolved with Sequelae]
  - Hyperuricaemia [Recovered/Resolved with Sequelae]
  - Dyspnoea [Recovered/Resolved with Sequelae]
  - Fatigue [Recovered/Resolved with Sequelae]
  - Decreased appetite [Recovered/Resolved with Sequelae]
  - Insomnia [Recovered/Resolved with Sequelae]
